FAERS Safety Report 7973362 (Version 2)
Quarter: 2012Q4

REPORT INFORMATION
  Report Type: 
  Country: US (occurrence: US)
  Receive Date: 20110603
  Receipt Date: 20120903
  Transmission Date: 20130627
  Serious: Yes (Other)
  Sender: FDA-Public Use
  Company Number: US-BAYER-2011-047521

PATIENT
  Age: 26 Year
  Sex: Female

DRUGS (5)
  1. YASMIN [Suspect]
     Indication: CONTRACEPTION
  2. YAZ [Suspect]
  3. MIDRIN [Concomitant]
     Indication: MIGRAINE
     Dosage: UNK UNK, PRN
  4. IBUPROFEN [Concomitant]
     Indication: ARTHRALGIA
  5. MULTI VITAMIN [Concomitant]

REACTIONS (3)
  - Deep vein thrombosis [None]
  - Injury [None]
  - Pain [None]
